FAERS Safety Report 15291790 (Version 2)
Quarter: 2018Q3

REPORT INFORMATION
  Report Type: Spontaneous
  Country: US (occurrence: US)
  Receive Date: 20180817
  Receipt Date: 20180907
  Transmission Date: 20181010
  Serious: Yes (Hospitalization, Other)
  Sender: FDA-Public Use
  Company Number: US-009507513-1808USA003649

PATIENT
  Age: 79 Year
  Sex: Female

DRUGS (17)
  1. CABOMETYX [Suspect]
     Active Substance: CABOZANTINIB S-MALATE
     Indication: RENAL CANCER
     Dosage: 40 MG, QD
     Route: 048
     Dates: start: 20180501, end: 201805
  2. EMLA [Concomitant]
     Active Substance: LIDOCAINE\PRILOCAINE
  3. TYLENOL [Concomitant]
     Active Substance: ACETAMINOPHEN
  4. XGEVA [Concomitant]
     Active Substance: DENOSUMAB
  5. VOTRIENT [Suspect]
     Active Substance: PAZOPANIB HYDROCHLORIDE
     Indication: RENAL CANCER
  6. CENTRUM SILVER [Concomitant]
     Active Substance: MINERALS\VITAMINS
  7. ZOFRAN [Concomitant]
     Active Substance: ONDANSETRON HYDROCHLORIDE
  8. COMPAZINE (PROCHLORPERAZINE MALEATE) [Concomitant]
  9. REMERON [Suspect]
     Active Substance: MIRTAZAPINE
     Route: 048
  10. AMLODIPINE BESYLATE. [Concomitant]
     Active Substance: AMLODIPINE BESYLATE
  11. SODIUM CHLORIDE. [Concomitant]
     Active Substance: SODIUM CHLORIDE
  12. COLACE [Concomitant]
     Active Substance: DOCUSATE SODIUM
  13. GLYCOLAX [Concomitant]
     Active Substance: POLYETHYLENE GLYCOL 3350
  14. OPDIVO [Suspect]
     Active Substance: NIVOLUMAB
     Indication: RENAL CANCER
  15. SYNTHROID [Concomitant]
     Active Substance: LEVOTHYROXINE SODIUM
  16. SENOKOT [Concomitant]
     Active Substance: SENNOSIDES
  17. PRAVACHOL [Concomitant]
     Active Substance: PRAVASTATIN SODIUM

REACTIONS (21)
  - Amyloidosis [Unknown]
  - Cough [Unknown]
  - Constipation [Unknown]
  - Metastases to bone [Unknown]
  - Jaw disorder [Unknown]
  - Dysphagia [Unknown]
  - Tachypnoea [Unknown]
  - Hypoxia [Unknown]
  - Dyspnoea [Unknown]
  - Chest discomfort [Unknown]
  - Malignant pleural effusion [Unknown]
  - Lethargy [Unknown]
  - Fatigue [Unknown]
  - Osteonecrosis of jaw [Unknown]
  - Pulmonary oedema [Unknown]
  - Hypoxia [Unknown]
  - Productive cough [Unknown]
  - Malignant neoplasm progression [Unknown]
  - Nervous system disorder [Unknown]
  - Dyspnoea [Recovered/Resolved]
  - Hallucination, visual [Unknown]

NARRATIVE: CASE EVENT DATE: 201806
